FAERS Safety Report 4423216-7 (Version None)
Quarter: 2004Q3

REPORT INFORMATION
  Report Type: 
  Country: None (occurrence: None)
  Receive Date: 20040805
  Receipt Date: 20040723
  Transmission Date: 20050211
  Serious: Yes (Other)
  Sender: FDA-Public Use
  Company Number: US-JNJFOC-20040706475

PATIENT
  Age: 56 Year
  Sex: Female

DRUGS (7)
  1. INFLIXIMAB (INFLIXIMAB, RECOMBINANT) LYOPHILIZED POWDER [Suspect]
     Indication: RHEUMATOID ARTHRITIS
     Dosage: 4 VIALS EVERY 7 WEEKS
     Dates: start: 20030102, end: 20030828
  2. METHOTREXATE [Concomitant]
  3. PREDNISONE [Concomitant]
  4. FOLIC ACID [Concomitant]
  5. MULTIVITAMIN (MULTIVITAMINS) [Concomitant]
  6. CALCIUM (CALCIUM) [Concomitant]
  7. FOSAMAX [Concomitant]

REACTIONS (1)
  - BREAST CANCER IN SITU [None]
